FAERS Safety Report 25787845 (Version 1)
Quarter: 2025Q3

REPORT INFORMATION
  Report Type: Spontaneous
  Country: US (occurrence: None)
  Receive Date: 20250910
  Receipt Date: 20250910
  Transmission Date: 20251021
  Serious: Yes (Hospitalization, Other)
  Sender: FDA-CTU
  Company Number: None

PATIENT
  Age: 58 Year
  Sex: Female
  Weight: 72 kg

DRUGS (6)
  1. VUEWAY [Suspect]
     Active Substance: GADOPICLENOL
     Indication: Magnetic resonance imaging
     Route: 042
     Dates: start: 20250902, end: 20250902
  2. TIROSINT [Concomitant]
     Active Substance: LEVOTHYROXINE SODIUM
  3. LIOTHYRONINE [Concomitant]
     Active Substance: LIOTHYRONINE
  4. PROGESTERONE [Concomitant]
     Active Substance: PROGESTERONE
  5. ESTRADIOL [Concomitant]
     Active Substance: ESTRADIOL
  6. B12 Multivitamin Vitamin D3 [Concomitant]

REACTIONS (4)
  - Contrast media reaction [None]
  - Injection site rash [None]
  - Vision blurred [None]
  - Contrast media toxicity [None]

NARRATIVE: CASE EVENT DATE: 20250903
